FAERS Safety Report 8312263-0 (Version None)
Quarter: 2012Q2

REPORT INFORMATION
  Report Type: 
  Country: None (occurrence: None)
  Receive Date: 20120425
  Receipt Date: 20120418
  Transmission Date: 20120825
  Serious: Yes (Other)
  Sender: FDA-Public Use
  Company Number: US-ROCHE-1037662

PATIENT
  Sex: Male
  Weight: 91 kg

DRUGS (2)
  1. ZELBORAF [Suspect]
     Route: 048
  2. ZELBORAF [Suspect]
     Indication: MALIGNANT MELANOMA
     Route: 048
     Dates: start: 20110822

REACTIONS (5)
  - JOINT SWELLING [None]
  - ARTHRALGIA [None]
  - ALOPECIA [None]
  - SKIN LESION [None]
  - VISUAL IMPAIRMENT [None]
